FAERS Safety Report 19956068 (Version 1)
Quarter: 2021Q4

REPORT INFORMATION
  Report Type: Spontaneous
  Country: SE (occurrence: SE)
  Receive Date: 20211014
  Receipt Date: 20211014
  Transmission Date: 20220303
  Serious: Yes (Death)
  Sender: FDA-Public Use
  Company Number: SE-PFM-2021-09526

PATIENT

DRUGS (2)
  1. NERLYNX [Suspect]
     Active Substance: NERATINIB
     Indication: Breast cancer metastatic
     Dosage: UNK
     Route: 048
     Dates: start: 202106, end: 2021
  2. NERLYNX [Suspect]
     Active Substance: NERATINIB
     Indication: Off label use

REACTIONS (3)
  - Death [Fatal]
  - Metastases to lung [Fatal]
  - Off label use [Fatal]

NARRATIVE: CASE EVENT DATE: 20210101
